FAERS Safety Report 19186048 (Version 1)
Quarter: 2021Q2

REPORT INFORMATION
  Report Type: Spontaneous
  Country: US (occurrence: US)
  Receive Date: 20210427
  Receipt Date: 20210427
  Transmission Date: 20210717
  Serious: No
  Sender: FDA-Public Use
  Company Number: US-VIFOR (INTERNATIONAL) INC.-VIT-2021-03175

PATIENT
  Age: 38 Year
  Sex: Female

DRUGS (11)
  1. CARVEDILOL. [Concomitant]
     Active Substance: CARVEDILOL
  2. XARELTO [Concomitant]
     Active Substance: RIVAROXABAN
  3. CLONIDINE. [Concomitant]
     Active Substance: CLONIDINE
  4. DILTIAZEM. [Concomitant]
     Active Substance: DILTIAZEM
  5. TORSEMIDE. [Concomitant]
     Active Substance: TORSEMIDE
  6. PROMETHAZINE [Concomitant]
     Active Substance: PROMETHAZINE HYDROCHLORIDE
  7. DOXAZOSIN [Concomitant]
     Active Substance: DOXAZOSIN MESYLATE
  8. TIZANIDINE. [Concomitant]
     Active Substance: TIZANIDINE
  9. LORAZEPAM. [Concomitant]
     Active Substance: LORAZEPAM
  10. VELTASSA [Suspect]
     Active Substance: PATIROMER
     Indication: PRODUCT USED FOR UNKNOWN INDICATION
     Dates: start: 201903
  11. MIRALAX [Concomitant]
     Active Substance: POLYETHYLENE GLYCOL 3350

REACTIONS (1)
  - Off label use [Unknown]

NARRATIVE: CASE EVENT DATE: 201903
